FAERS Safety Report 17441842 (Version 1)
Quarter: 2020Q1

REPORT INFORMATION
  Report Type: Spontaneous
  Country: FR (occurrence: FR)
  Receive Date: 20200220
  Receipt Date: 20200220
  Transmission Date: 20200409
  Serious: Yes (Death, Other)
  Sender: FDA-Public Use
  Company Number: FR-MYLANLABS-2020M1019293

PATIENT
  Age: 37 Year
  Sex: Female

DRUGS (4)
  1. IMATINIB. [Suspect]
     Active Substance: IMATINIB MESYLATE
     Indication: GASTROINTESTINAL STROMAL TUMOUR
     Dosage: 400 MG QD
     Route: 065
     Dates: start: 201901
  2. REGORAFENIB. [Suspect]
     Active Substance: REGORAFENIB
     Indication: PRODUCT USED FOR UNKNOWN INDICATION
     Dosage: 160 MG, QD (7 DAYS OFF)
     Route: 065
  3. PROMEGESTONE [Suspect]
     Active Substance: PROMEGESTONE
     Indication: ENDOMETRIOSIS
     Dosage: 0.5 MG, QD
     Route: 065
  4. SUNITINIB [Suspect]
     Active Substance: SUNITINIB
     Indication: PRODUCT USED FOR UNKNOWN INDICATION
     Dosage: 50 MG QD (2 DAYS OFF)
     Route: 065

REACTIONS (5)
  - Endometriosis [Unknown]
  - Liver disorder [Unknown]
  - Malignant neoplasm progression [Fatal]
  - Therapy partial responder [Unknown]
  - Gastrointestinal stromal tumour [Fatal]

NARRATIVE: CASE EVENT DATE: 201705
